FAERS Safety Report 20323639 (Version 1)
Quarter: 2022Q1

REPORT INFORMATION
  Report Type: Spontaneous
  Country: DE (occurrence: DE)
  Receive Date: 20220111
  Receipt Date: 20220111
  Transmission Date: 20220423
  Serious: Yes (Death, Other)
  Sender: FDA-Public Use
  Company Number: DE-AMGEN-DEUSP2022001490

PATIENT

DRUGS (8)
  1. BLINATUMOMAB [Suspect]
     Active Substance: BLINATUMOMAB
     Indication: Acute lymphocytic leukaemia
     Dosage: UNK
     Route: 065
  2. PEG/L-ASPARAGINASE [Concomitant]
     Active Substance: PEGASPARGASE
  3. METHOTREXATE [Concomitant]
     Active Substance: METHOTREXATE
  4. NELARABINE [Concomitant]
     Active Substance: NELARABINE
  5. RITUXIMAB [Concomitant]
     Active Substance: RITUXIMAB
  6. IMATINIB [Concomitant]
     Active Substance: IMATINIB
  7. VINCRISTINE [Concomitant]
     Active Substance: VINCRISTINE
  8. DEXAMETHASONE [Concomitant]
     Active Substance: DEXAMETHASONE

REACTIONS (1)
  - Death [Fatal]
